FAERS Safety Report 10208982 (Version 2)
Quarter: 2014Q3

REPORT INFORMATION
  Report Type: Spontaneous
  Country: BR (occurrence: BR)
  Receive Date: 20140530
  Receipt Date: 20140703
  Transmission Date: 20150326
  Serious: Yes (Other)
  Sender: FDA-Public Use
  Company Number: PHHY2014BR063384

PATIENT
  Age: 57 Year
  Sex: Male
  Weight: 74 kg

DRUGS (1)
  1. DIASEC [Suspect]
     Active Substance: LOPERAMIDE HYDROCHLORIDE
     Indication: COLOSTOMY
     Dosage: 12 MG, Q8H
     Route: 048
     Dates: start: 20140428

REACTIONS (1)
  - Poor quality drug administered [Unknown]
